FAERS Safety Report 6186376-6 (Version None)
Quarter: 2009Q2

REPORT INFORMATION
  Report Type: 
  Country: None (occurrence: None)
  Receive Date: 20090511
  Receipt Date: 20090506
  Transmission Date: 20091009
  Serious: Yes (Death)
  Sender: FDA-Public Use
  Company Number: GB-B.I. PHARMACEUTICALS,INC./RIDGEFIELD-2009-UK-00403UK

PATIENT

DRUGS (4)
  1. VIRAMUNE [Suspect]
     Indication: DRUG EXPOSURE DURING PREGNANCY
     Route: 064
     Dates: start: 20070718
  2. EPIVIR [Suspect]
     Indication: DRUG EXPOSURE DURING PREGNANCY
     Route: 064
  3. GENATOSAN MULTIVITAMINS [Suspect]
     Indication: DRUG EXPOSURE DURING PREGNANCY
     Route: 064
  4. TENOFOVIR [Suspect]
     Indication: DRUG EXPOSURE DURING PREGNANCY
     Route: 064

REACTIONS (1)
  - INTRA-UTERINE DEATH [None]
